APPROVED DRUG PRODUCT: OXYCODONE HYDROCHLORIDE
Active Ingredient: OXYCODONE HYDROCHLORIDE
Strength: 100MG/5ML
Dosage Form/Route: SOLUTION;ORAL
Application: A209897 | Product #001 | TE Code: AA
Applicant: HIBROW HEALTHCARE PRIVATE LTD
Approved: Sep 6, 2017 | RLD: No | RS: No | Type: RX